FAERS Safety Report 17553492 (Version 2)
Quarter: 2020Q2

REPORT INFORMATION
  Report Type: Report from Study
  Country: CA (occurrence: CA)
  Receive Date: 20200317
  Receipt Date: 20200602
  Transmission Date: 20200713
  Serious: Yes (Other)
  Sender: FDA-Public Use
  Company Number: CA-JNJFOC-20200307461

PATIENT
  Age: 44 Year
  Sex: Female

DRUGS (4)
  1. CLARITHROMYCIN. [Concomitant]
     Active Substance: CLARITHROMYCIN
     Indication: EAR INFECTION
     Dosage: STRENGTH = 500 MG
     Route: 048
     Dates: start: 20200223, end: 20200304
  2. SIMPONI [Suspect]
     Active Substance: GOLIMUMAB
     Dosage: STRENGTH = 50 MG
     Route: 058
     Dates: start: 20170307
  3. MOXIFLOXACIN. [Concomitant]
     Active Substance: MOXIFLOXACIN
     Indication: EAR INFECTION
     Dosage: STRENGTH = 400 MG
     Route: 048
     Dates: start: 20200301
  4. SIMPONI [Suspect]
     Active Substance: GOLIMUMAB
     Indication: PSORIATIC ARTHROPATHY
     Dosage: STRENGTH = 50 MG
     Route: 058
     Dates: start: 20180209

REACTIONS (6)
  - Ear infection [Not Recovered/Not Resolved]
  - Cough [Unknown]
  - Product use issue [Unknown]
  - Breast cyst [Unknown]
  - Breast prosthesis removal [Unknown]
  - Off label use [Unknown]

NARRATIVE: CASE EVENT DATE: 20170307
